FAERS Safety Report 26198703 (Version 1)
Quarter: 2025Q4

REPORT INFORMATION
  Report Type: Spontaneous
  Country: US (occurrence: US)
  Receive Date: 20251225
  Receipt Date: 20251225
  Transmission Date: 20260119
  Serious: No
  Sender: NOVARTIS
  Company Number: US-002147023-NVSC2025US196633

PATIENT
  Sex: Male
  Weight: 93.44 kg

DRUGS (1)
  1. VANRAFIA [Suspect]
     Active Substance: ATRASENTAN HYDROCHLORIDE
     Indication: Haematuria
     Dosage: 0.75 MG, QD
     Route: 048

REACTIONS (1)
  - Hypervolaemia [Unknown]
